FAERS Safety Report 7704326-5 (Version None)
Quarter: 2011Q3

REPORT INFORMATION
  Report Type: 
  Country: None (occurrence: None)
  Receive Date: 20110823
  Receipt Date: 20110809
  Transmission Date: 20111222
  Serious: Yes (Other)
  Sender: FDA-Public Use
  Company Number: PHHY2011FR72215

PATIENT
  Sex: Male

DRUGS (3)
  1. TRILEPTAL [Suspect]
     Dosage: UNK UKN, UNK
  2. RABIES VACCINE ^PASTEUR^ [Suspect]
     Dosage: UNK UKN, UNK
  3. PRAZEPAM [Concomitant]
     Dosage: UNK UKN, UNK

REACTIONS (4)
  - FATIGUE [None]
  - PETIT MAL EPILEPSY [None]
  - MALAISE [None]
  - ANIMAL BITE [None]
